FAERS Safety Report 6054519-0 (Version None)
Quarter: 2009Q1

REPORT INFORMATION
  Report Type: 
  Country: None (occurrence: None)
  Receive Date: 20090127
  Receipt Date: 20090119
  Transmission Date: 20090719
  Serious: Yes (Hospitalization, Other)
  Sender: FDA-Public Use
  Company Number: PHBS2009US00551

PATIENT
  Age: 25 Year
  Sex: Female

DRUGS (4)
  1. OXYTOCIN [Suspect]
     Indication: LABOUR INDUCTION
     Dosage: 1 MU EVERY 15 MINUTES OR A MAXIMUM DOSE OF 20 MU/MIN
     Route: 042
  2. OXYTOCIN [Suspect]
     Dosage: 20 U IN 1000 CC OF LACTATED RINGERS AT A RATE OF 125 ML/HR
     Route: 042
  3. OXYTOCIN [Suspect]
     Dosage: 10 U
     Route: 030
  4. METHERGINE [Concomitant]
     Route: 030

REACTIONS (7)
  - ARTIFICIAL RUPTURE OF MEMBRANES [None]
  - DRUG EXPOSURE DURING PREGNANCY [None]
  - EPIDURAL ANAESTHESIA [None]
  - HAEMATOCRIT DECREASED [None]
  - HAEMOGLOBIN DECREASED [None]
  - POSTPARTUM HAEMORRHAGE [None]
  - UTERINE ATONY [None]
